FAERS Safety Report 7390332-X (Version None)
Quarter: 2011Q2

REPORT INFORMATION
  Report Type: 
  Country: None (occurrence: None)
  Receive Date: 20110401
  Receipt Date: 20110325
  Transmission Date: 20111010
  Serious: Yes (Hospitalization)
  Sender: FDA-Public Use
  Company Number: US-US-EMD SERONO, INC.-7050350

PATIENT
  Sex: Female
  Weight: 148 kg

DRUGS (2)
  1. REBIF [Suspect]
     Indication: MULTIPLE SCLEROSIS
     Route: 058
     Dates: start: 20091106
  2. EXCEDRIN (MIGRAINE) [Concomitant]
     Indication: HEADACHE

REACTIONS (5)
  - MIGRAINE [None]
  - BLOOD PRESSURE INCREASED [None]
  - NEURALGIA [None]
  - MULTIPLE SCLEROSIS RELAPSE [None]
  - PAIN IN EXTREMITY [None]
